FAERS Safety Report 4509017-X (Version None)
Quarter: 2004Q4

REPORT INFORMATION
  Report Type: 
  Country: None (occurrence: None)
  Receive Date: 20041122
  Receipt Date: 20041122
  Transmission Date: 20050328
  Serious: Yes (Death, Hospitalization)
  Sender: FDA-Public Use
  Company Number: None

PATIENT
  Age: 89 Year
  Sex: Male
  Weight: 57.5 kg

DRUGS (2)
  1. ALTEPLASE [Suspect]
     Indication: VASCULAR OCCLUSION
     Dosage: 0.5  MG/HR  INTRA-ARTE
     Route: 013
     Dates: start: 20040412, end: 20040413
  2. HEPARIN [Suspect]
     Indication: VASCULAR OCCLUSION
     Dosage: 50  UNITS/HR  INTRAVENOUS
     Route: 042
     Dates: start: 20040412, end: 20040413

REACTIONS (1)
  - CEREBRAL HAEMORRHAGE [None]
